FAERS Safety Report 12491780 (Version 1)
Quarter: 2016Q2

REPORT INFORMATION
  Report Type: Report from Study
  Country: MX (occurrence: MX)
  Receive Date: 20160623
  Receipt Date: 20160623
  Transmission Date: 20160815
  Serious: Yes (Death, Hospitalization, Other)
  Sender: FDA-Public Use
  Company Number: PHHY2016MX084605

PATIENT
  Age: 45 Year
  Sex: Male

DRUGS (1)
  1. NILOTINIB [Suspect]
     Active Substance: NILOTINIB
     Indication: CHRONIC MYELOID LEUKAEMIA
     Dosage: 400 MG, Q12H (EVERY 12 HOURS)
     Route: 065
     Dates: start: 201305

REACTIONS (4)
  - Death [Fatal]
  - Pleural effusion [Unknown]
  - Respiratory failure [Unknown]
  - Graft versus host disease in lung [Unknown]

NARRATIVE: CASE EVENT DATE: 201503
